FAERS Safety Report 5942556-3 (Version None)
Quarter: 2008Q4

REPORT INFORMATION
  Report Type: 
  Country: None (occurrence: None)
  Receive Date: 20081105
  Receipt Date: 20081030
  Transmission Date: 20090506
  Serious: Yes (Hospitalization)
  Sender: FDA-Public Use
  Company Number: AT-PFIZER INC-2008091496

PATIENT
  Age: 69 Year
  Sex: Male
  Weight: 85 kg

DRUGS (4)
  1. HALCION [Suspect]
     Indication: INSOMNIA
     Route: 048
     Dates: start: 20081008
  2. MEFENAMIC ACID [Suspect]
     Indication: MUSCULOSKELETAL PAIN
     Route: 048
     Dates: start: 20081001
  3. DICLOFENAC SODIUM [Suspect]
     Indication: MUSCULOSKELETAL PAIN
     Route: 048
     Dates: start: 20081001
  4. ALLOPURINOL [Suspect]
     Indication: HYPERURICAEMIA
     Dates: start: 20081001

REACTIONS (1)
  - RASH MACULO-PAPULAR [None]
